FAERS Safety Report 5199864-6 (Version None)
Quarter: 2007Q1

REPORT INFORMATION
  Report Type: 
  Country: None (occurrence: None)
  Receive Date: 20070105
  Receipt Date: 20061229
  Transmission Date: 20070707
  Serious: Yes (Other)
  Sender: FDA-Public Use
  Company Number: DE-AMGEN-UK205158

PATIENT
  Sex: Female
  Weight: 50 kg

DRUGS (12)
  1. NEUPOGEN [Suspect]
     Indication: CHEMOTHERAPY
     Route: 065
  2. TAVANIC [Suspect]
     Route: 048
     Dates: start: 20061001, end: 20061012
  3. DOCETAXEL [Suspect]
     Route: 042
     Dates: start: 20060928
  4. FORTECORTIN [Suspect]
     Route: 048
     Dates: start: 20060921, end: 20060921
  5. NAVOBAN [Concomitant]
     Route: 042
     Dates: start: 20060928
  6. TAVEGIL [Concomitant]
     Route: 042
     Dates: start: 20060928
  7. RANITIDINE [Concomitant]
     Route: 042
     Dates: start: 20060928
  8. ASPIRIN [Concomitant]
     Route: 065
  9. ATORVASTATIN CALCIUM [Concomitant]
     Route: 065
  10. BLOPRESS [Concomitant]
     Route: 065
  11. METOPROLOL SUCCINATE [Concomitant]
     Route: 065
  12. DALMADORM [Concomitant]
     Route: 065

REACTIONS (1)
  - TENDON RUPTURE [None]
